FAERS Safety Report 16932233 (Version 1)
Quarter: 2019Q4

REPORT INFORMATION
  Report Type: Spontaneous
  Country: US (occurrence: US)
  Receive Date: 20190827
  Receipt Date: 20190827
  Transmission Date: 20200122
  Serious: No
  Sender: FDA-Public Use
  Company Number: None

PATIENT
  Age: 60 Year
  Sex: Female

DRUGS (1)
  1. BOTOX [Suspect]
     Active Substance: ONABOTULINUMTOXINA
     Indication: MIGRAINE WITHOUT AURA
     Dosage: ?          OTHER STRENGTH:100 UNITS;OTHER DOSE:200 UNITS;OTHER FREQUENCY:UNKNOWN;?
     Route: 030
     Dates: start: 201610

REACTIONS (3)
  - Insurance issue [None]
  - Product dose omission [None]
  - Migraine [None]

NARRATIVE: CASE EVENT DATE: 20190802
